FAERS Safety Report 11971881 (Version 3)
Quarter: 2016Q1

REPORT INFORMATION
  Report Type: Spontaneous
  Country: PT (occurrence: PT)
  Receive Date: 20160128
  Receipt Date: 20160204
  Transmission Date: 20160526
  Serious: Yes (Other)
  Sender: FDA-Public Use
  Company Number: PT-SA-2016SA013004

PATIENT
  Age: 54 Year
  Sex: Female

DRUGS (7)
  1. METOCLOPRAMIDE. [Concomitant]
     Active Substance: METOCLOPRAMIDE
     Indication: ANXIETY
  2. PARACETAMOL [Concomitant]
     Active Substance: ACETAMINOPHEN
     Indication: HEADACHE
  3. FOLINIC ACID [Suspect]
     Active Substance: LEUCOVORIN
     Indication: COLORECTAL CANCER
     Dosage: CONCURRENTLY WITH OXALIPLATIN, 200 MG/M2/DAY, EVERY 3 WEEKS
     Route: 065
  4. FLUOROURACIL. [Suspect]
     Active Substance: FLUOROURACIL
     Indication: COLORECTAL CANCER
     Dosage: BOLUS
  5. LOPRAZOLAM [Concomitant]
     Active Substance: LOPRAZOLAM
     Indication: ANXIETY
  6. OXALIPLATIN. [Suspect]
     Active Substance: OXALIPLATIN
     Indication: COLORECTAL CANCER
     Dosage: INFUSION, ON DAY 1, EVERY 3 WEEKS.
     Route: 065
  7. FLUOROURACIL. [Suspect]
     Active Substance: FLUOROURACIL
     Indication: COLORECTAL CANCER
     Dosage: FOR 2 CONSECUTIVE DAYS, EVERY 3 WEEKS
     Route: 065

REACTIONS (9)
  - Optic neuritis [Recovered/Resolved]
  - Retinal haemorrhage [Recovered/Resolved]
  - Vomiting [Unknown]
  - Intracranial pressure increased [Recovered/Resolved]
  - Visual field defect [Recovered/Resolved]
  - Headache [Recovered/Resolved]
  - Ocular toxicity [Recovered/Resolved]
  - Vision blurred [Recovered/Resolved]
  - Nausea [Unknown]
